FAERS Safety Report 20684694 (Version 2)
Quarter: 2022Q3

REPORT INFORMATION
  Report Type: Spontaneous
  Country: JP (occurrence: JP)
  Receive Date: 20220407
  Receipt Date: 20220722
  Transmission Date: 20221026
  Serious: Yes (Death, Other)
  Sender: FDA-Public Use
  Company Number: JP-JAZZ-2021-JP-021050

PATIENT
  Age: 56 Year
  Sex: Male
  Weight: 75.4 kg

DRUGS (1)
  1. DEFITELIO [Suspect]
     Active Substance: DEFIBROTIDE SODIUM
     Indication: Venoocclusive liver disease
     Dosage: 25 MILLIGRAM/KILOGRAM/DAY ((6.25 MG/KG/6 HOURS)
     Route: 042
     Dates: start: 20211029, end: 20211120

REACTIONS (5)
  - Upper gastrointestinal haemorrhage [Fatal]
  - Duodenal ulcer haemorrhage [Fatal]
  - Aneurysm ruptured [Fatal]
  - Duodenal perforation [Fatal]
  - Blood creatine phosphokinase increased [Not Recovered/Not Resolved]

NARRATIVE: CASE EVENT DATE: 20210101
